FAERS Safety Report 4598739-0 (Version None)
Quarter: 2005Q1

REPORT INFORMATION
  Report Type: 
  Country: None (occurrence: None)
  Receive Date: 20050304
  Receipt Date: 20050225
  Transmission Date: 20050727
  Serious: Yes (Hospitalization)
  Sender: FDA-Public Use
  Company Number: FR-GLAXOSMITHKLINE-B0372981A

PATIENT
  Age: 5 Month
  Sex: Male

DRUGS (3)
  1. RETROVIR [Suspect]
     Indication: ANTIVIRAL PROPHYLAXIS
     Dosage: 8MGKD PER DAY
     Route: 048
     Dates: start: 20040807, end: 20040918
  2. COMBIVIR [Suspect]
     Indication: HIV INFECTION
  3. VIRACEPT [Suspect]
     Indication: HIV INFECTION

REACTIONS (4)
  - CORNEAL OPACITY [None]
  - DRUG EXPOSURE DURING PREGNANCY [None]
  - GLAUCOMA [None]
  - PHOTOPHOBIA [None]
